FAERS Safety Report 5897252-8 (Version None)
Quarter: 2008Q3

REPORT INFORMATION
  Report Type: 
  Country: None (occurrence: None)
  Receive Date: 20080925
  Receipt Date: 20080915
  Transmission Date: 20090109
  Serious: Yes (Hospitalization)
  Sender: FDA-Public Use
  Company Number: IT-RANBAXY-2008RR-18055

PATIENT
  Sex: Female

DRUGS (1)
  1. CIPROFLOXACINA RANBAXY 250 MG COMPRESSE RIVESTITE CON FILM [Suspect]

REACTIONS (4)
  - CUTANEOUS VASCULITIS [None]
  - NEPHRITIS INTERSTITIAL [None]
  - POLYNEUROPATHY [None]
  - RENAL FAILURE ACUTE [None]
